FAERS Safety Report 10011503 (Version 1)
Quarter: 2014Q1

REPORT INFORMATION
  Report Type: Spontaneous
  Country: US (occurrence: US)
  Receive Date: 20140314
  Receipt Date: 20140314
  Transmission Date: 20141002
  Serious: Yes (Other)
  Sender: FDA-Public Use
  Company Number: US-PFIZER INC-2014075238

PATIENT
  Age: 58 Year
  Sex: 0

DRUGS (2)
  1. CHANTIX [Suspect]
     Dosage: UNK
  2. AVELOX [Interacting]
     Dosage: UNK

REACTIONS (2)
  - Drug interaction [Unknown]
  - Suicidal ideation [Unknown]
